FAERS Safety Report 19075052 (Version 2)
Quarter: 2022Q1

REPORT INFORMATION
  Report Type: Spontaneous
  Country: US (occurrence: None)
  Receive Date: 20210330
  Receipt Date: 20220323
  Transmission Date: 20220423
  Serious: No
  Sender: FDA-Public Use
  Company Number: US-ROCHE-2744775

PATIENT
  Sex: Female

DRUGS (14)
  1. ERIVEDGE [Suspect]
     Active Substance: VISMODEGIB
     Indication: Basal cell carcinoma
     Dosage: DAILY 10 DAYS , A MONTH FOR 1 YEAR.
     Route: 048
     Dates: start: 20201209
  2. ACETAMINOPHEN [Concomitant]
     Active Substance: ACETAMINOPHEN
  3. ASPIRIN [Concomitant]
     Active Substance: ASPIRIN
     Dosage: CHE
  4. PEPTO-BISMOL [Concomitant]
     Active Substance: BISMUTH SUBSALICYLATE
     Dosage: CHE
  5. RANOLAZINE [Concomitant]
     Active Substance: RANOLAZINE
     Dosage: E TB1 500 MG
  6. TUMS EX [Concomitant]
     Active Substance: CALCIUM CARBONATE
  7. CRESTOR [Concomitant]
     Active Substance: ROSUVASTATIN CALCIUM
  8. NIACIN [Concomitant]
     Active Substance: NIACIN
  9. PIOGLITAZONE [Concomitant]
     Active Substance: PIOGLITAZONE
  10. LEVOTHYROXINE SODIUM [Concomitant]
     Active Substance: LEVOTHYROXINE SODIUM
  11. LOVAZA [Concomitant]
     Active Substance: OMEGA-3-ACID ETHYL ESTERS
  12. ISOSORBIDE MONONITRATE [Concomitant]
     Active Substance: ISOSORBIDE MONONITRATE
  13. PANTOPRAZOLE SODIUM [Concomitant]
     Active Substance: PANTOPRAZOLE SODIUM
  14. LEVOTHYROXINE [Concomitant]
     Active Substance: LEVOTHYROXINE
     Dosage: ACCU-CHEK SMARTVIEW STRIP

REACTIONS (1)
  - Fatigue [Not Recovered/Not Resolved]
